FAERS Safety Report 11150447 (Version 1)
Quarter: 2015Q2

REPORT INFORMATION
  Report Type: Spontaneous
  Country: BR (occurrence: BR)
  Receive Date: 20150531
  Receipt Date: 20150531
  Transmission Date: 20150821
  Serious: Yes (Hospitalization)
  Sender: FDA-Public Use
  Company Number: BR-009507513-1505BRA009971

PATIENT
  Age: 23 Year
  Sex: Female
  Weight: 59 kg

DRUGS (4)
  1. METHOTREXATE [Suspect]
     Active Substance: METHOTREXATE
     Indication: PSORIASIS
     Dosage: UNK, QW
     Route: 048
     Dates: start: 201405, end: 20150111
  2. MICRODIOL [Suspect]
     Active Substance: DESOGESTREL\ETHINYL ESTRADIOL
     Indication: CONTRACEPTION
     Dosage: 1 DF, QD
     Route: 048
  3. PREDNISONE. [Suspect]
     Active Substance: PREDNISONE
     Indication: PSORIASIS
     Dosage: 40 MG, QD
     Route: 048
     Dates: start: 2011
  4. ETANERCEPT [Suspect]
     Active Substance: ETANERCEPT
     Indication: PSORIASIS
     Dosage: QW
     Route: 058
     Dates: start: 20121101, end: 20150111

REACTIONS (5)
  - Unintended pregnancy [Not Recovered/Not Resolved]
  - Psoriasis [Recovered/Resolved]
  - High risk pregnancy [Not Recovered/Not Resolved]
  - Rash pustular [Recovered/Resolved]
  - Erythema multiforme [Recovered/Resolved]

NARRATIVE: CASE EVENT DATE: 20141205
